FAERS Safety Report 4348128-9 (Version None)
Quarter: 2004Q1

REPORT INFORMATION
  Report Type: 
  Country: None (occurrence: None)
  Receive Date: 20040325
  Receipt Date: 20040219
  Transmission Date: 20041129
  Serious: No
  Sender: FDA-Public Use
  Company Number: USA040259281

PATIENT
  Age: 84 Year
  Sex: Female

DRUGS (1)
  1. FORTEO [Suspect]
     Indication: OSTEOPOROSIS
     Dosage: 20 UG/ DAY
     Dates: start: 20040127

REACTIONS (7)
  - AURICULAR SWELLING [None]
  - EAR INFECTION [None]
  - EAR PAIN [None]
  - PHARYNGOLARYNGEAL PAIN [None]
  - POSTNASAL DRIP [None]
  - PRODUCTIVE COUGH [None]
  - VOMITING [None]
